FAERS Safety Report 6572097-4 (Version None)
Quarter: 2010Q1

REPORT INFORMATION
  Report Type: 
  Country: None (occurrence: None)
  Receive Date: 20100205
  Receipt Date: 20100125
  Transmission Date: 20100710
  Serious: Yes (Other)
  Sender: FDA-Public Use
  Company Number: PHHY2010ZA03951

PATIENT
  Sex: Male

DRUGS (1)
  1. GLEEVEC [Suspect]
     Dosage: 400 MG, UNK
     Route: 048

REACTIONS (5)
  - IMMUNOSUPPRESSION [None]
  - NEUTROPENIA [None]
  - PNEUMONIA [None]
  - PYOTHORAX [None]
  - TYPE 2 DIABETES MELLITUS [None]
